FAERS Safety Report 17246717 (Version 1)
Quarter: 2019Q4

REPORT INFORMATION
  Report Type: Spontaneous
  Country: US (occurrence: US)
  Receive Date: 20191213
  Receipt Date: 20191213
  Transmission Date: 20200122
  Serious: No
  Sender: FDA-Public Use
  Company Number: None

PATIENT
  Age: 68 Year
  Sex: Male

DRUGS (2)
  1. OXCARBAZEPINE. [Concomitant]
     Active Substance: OXCARBAZEPINE
  2. DESCOVY [Suspect]
     Active Substance: EMTRICITABINE\TENOFOVIR ALAFENAMIDE FUMARATE
     Dosage: ?          OTHER DOSE:200-25MG;?
     Route: 048
     Dates: start: 201808

REACTIONS (1)
  - Product use issue [None]

NARRATIVE: CASE EVENT DATE: 20191205
